FAERS Safety Report 21052920 (Version 1)
Quarter: 2022Q3

REPORT INFORMATION
  Report Type: Report from Study
  Country: MX (occurrence: MX)
  Receive Date: 20220707
  Receipt Date: 20220707
  Transmission Date: 20221027
  Serious: Yes (Life-Threatening)
  Sender: FDA-Public Use
  Company Number: MX-NOVARTISPH-NVSC2022MX154495

PATIENT
  Sex: Female
  Weight: 77 kg

DRUGS (2)
  1. ELTROMBOPAG OLAMINE [Suspect]
     Active Substance: ELTROMBOPAG OLAMINE
     Indication: Thrombocytopenic purpura
     Dosage: 1 DOSAGE FORM, QD (STARTED APPROXIMATELY 5 OR 6 YEARS AGO)
     Route: 048
  2. ELTROMBOPAG OLAMINE [Suspect]
     Active Substance: ELTROMBOPAG OLAMINE
     Dosage: 1 DOSAGE FORM, EVERY THIRD DAY
     Route: 048

REACTIONS (5)
  - Platelet count decreased [Recovering/Resolving]
  - General physical health deterioration [Recovering/Resolving]
  - Gastrointestinal infection [Recovered/Resolved]
  - Headache [Unknown]
  - Weight decreased [Unknown]
